FAERS Safety Report 16534901 (Version 3)
Quarter: 2019Q3

REPORT INFORMATION
  Report Type: Spontaneous
  Country: ES (occurrence: ES)
  Receive Date: 20190705
  Receipt Date: 20190830
  Transmission Date: 20191004
  Serious: Yes (Death, Hospitalization, Other)
  Sender: FDA-Public Use
  Company Number: ES-JAZZ-2019-ES-008904

PATIENT
  Age: 70 Year
  Sex: Female

DRUGS (1)
  1. VYXEOS [Suspect]
     Active Substance: CYTARABINE\DAUNORUBICIN
     Indication: ACUTE MYELOID LEUKAEMIA
     Dosage: 100MG/M2 CYTARABINE 44MG/M2 DAUNORUBICIN DAYS 1,3 AND 5
     Route: 042
     Dates: start: 20190607, end: 20190611

REACTIONS (4)
  - Death [Fatal]
  - Pericardial effusion [Unknown]
  - Refractoriness to platelet transfusion [Not Recovered/Not Resolved]
  - Pulmonary alveolar haemorrhage [Unknown]

NARRATIVE: CASE EVENT DATE: 20190612
